FAERS Safety Report 5446146-0 (Version None)
Quarter: 2007Q3

REPORT INFORMATION
  Report Type: 
  Country: None (occurrence: None)
  Receive Date: 20070904
  Receipt Date: 20070822
  Transmission Date: 20080115
  Serious: Yes (Hospitalization)
  Sender: FDA-Public Use
  Company Number: E2B_00010985

PATIENT
  Age: 48 Year
  Sex: Female

DRUGS (4)
  1. OLANZAPINE [Suspect]
     Indication: DELUSION
     Dosage: 40 MG (20 MG, 2 IN 1 D)
     Route: 048
     Dates: start: 20070710
  2. AMANTADINE HCL [Suspect]
     Indication: HALLUCINATION
     Dosage: 200 MG (100 MG, 2 IN 1D); (100 MG, 2 IN 1 D)
     Route: 048
     Dates: start: 20070626
  3. AMANTADINE HCL [Suspect]
     Indication: HALLUCINATION
     Dosage: 200 MG (100 MG, 2 IN 1D); (100 MG, 2 IN 1 D)
     Route: 048
     Dates: start: 20070626
  4. METFORMIN HYDROCHLORIDE [Suspect]
     Indication: DRUG USE FOR UNKNOWN INDICATION
     Dosage: 300 MG (300 MG)
     Route: 048
     Dates: start: 20070612, end: 20070625

REACTIONS (4)
  - CONDITION AGGRAVATED [None]
  - DRUG INTERACTION [None]
  - PSYCHOTIC DISORDER [None]
  - WEIGHT INCREASED [None]
